FAERS Safety Report 9072030 (Version 2)
Quarter: 2013Q1

REPORT INFORMATION
  Report Type: Spontaneous
  Country: FR (occurrence: FR)
  Receive Date: 20130129
  Receipt Date: 20130228
  Transmission Date: 20140127
  Serious: Yes (Other)
  Sender: FDA-Public Use
  Company Number: FR-ROCHE-1184914

PATIENT
  Age: 50 Year
  Sex: Female

DRUGS (5)
  1. XOLAIR [Suspect]
     Indication: ASTHMA
     Route: 058
     Dates: start: 20120521
  2. SINGULAIR [Concomitant]
     Route: 065
     Dates: start: 20110207
  3. ENBREL [Concomitant]
  4. AZITHROMYCIN [Concomitant]
     Dosage: TRADE NAME: NOVATREX
     Route: 065
  5. SERETIDE [Concomitant]

REACTIONS (4)
  - Vertigo [Recovered/Resolved]
  - Malaise [Unknown]
  - Dizziness [Unknown]
  - Asthenia [Recovered/Resolved]
